FAERS Safety Report 6596207-8 (Version None)
Quarter: 2010Q1

REPORT INFORMATION
  Report Type: 
  Country: None (occurrence: None)
  Receive Date: 20100204
  Receipt Date: 20091116
  Transmission Date: 20100710
  Serious: No
  Sender: FDA-Public Use
  Company Number: 2009-09912

PATIENT
  Age: 80 Year
  Sex: Male

DRUGS (4)
  1. RAPAFLO [Suspect]
     Indication: POLLAKIURIA
     Dosage: 1 CAPSUL, QAM, ORAL
     Route: 048
     Dates: start: 20091101
  2. SYNTHROID [Concomitant]
  3. CYTOMEL [Concomitant]
  4. NASACORT AQ [Concomitant]

REACTIONS (3)
  - DIZZINESS [None]
  - HEADACHE [None]
  - SINUS CONGESTION [None]
